FAERS Safety Report 7798847-7 (Version None)
Quarter: 2011Q4

REPORT INFORMATION
  Report Type: 
  Country: None (occurrence: None)
  Receive Date: 20111005
  Receipt Date: 20111005
  Transmission Date: 20120403
  Serious: No
  Sender: FDA-Public Use
  Company Number: None

PATIENT
  Sex: Male

DRUGS (1)
  1. AVONEX [Suspect]
     Indication: MULTIPLE SCLEROSIS
     Dosage: AVONEX 30MCG QW IM
     Route: 030
     Dates: start: 20000101

REACTIONS (3)
  - PYREXIA [None]
  - BONE PAIN [None]
  - PAIN [None]
